FAERS Safety Report 5084177-3 (Version None)
Quarter: 2006Q3

REPORT INFORMATION
  Report Type: 
  Country: None (occurrence: None)
  Receive Date: 20060821
  Receipt Date: 20050928
  Transmission Date: 20061208
  Serious: Yes (Hospitalization)
  Sender: FDA-Public Use
  Company Number: US-BRISTOL-MYERS SQUIBB COMPANY-13170683

PATIENT
  Age: 49 Year
  Sex: Female

DRUGS (3)
  1. TEQUIN [Suspect]
     Indication: PYREXIA
     Route: 042
     Dates: start: 20050101, end: 20050101
  2. TEQUIN [Suspect]
     Indication: CHILLS
     Route: 042
     Dates: start: 20050101, end: 20050101
  3. TORADOL [Concomitant]
     Route: 042

REACTIONS (1)
  - HYPOTENSION [None]
